FAERS Safety Report 4930262-3 (Version None)
Quarter: 2006Q1

REPORT INFORMATION
  Report Type: 
  Country: None (occurrence: None)
  Receive Date: 20060302
  Receipt Date: 20060223
  Transmission Date: 20060701
  Serious: Yes (Other)
  Sender: FDA-Public Use
  Company Number: GB-JNJFOC-20060205868

PATIENT
  Age: 18 Year
  Sex: Female

DRUGS (1)
  1. NORETHISTERONE [Suspect]
     Indication: OLIGOMENORRHOEA
     Route: 065

REACTIONS (6)
  - ANOREXIA [None]
  - CHOLESTASIS [None]
  - FATIGUE [None]
  - JAUNDICE [None]
  - LIVER FUNCTION TEST ABNORMAL [None]
  - PRURITUS [None]
